FAERS Safety Report 19226930 (Version 1)
Quarter: 2021Q2

REPORT INFORMATION
  Report Type: Spontaneous
  Country: US (occurrence: US)
  Receive Date: 20210506
  Receipt Date: 20210506
  Transmission Date: 20210717
  Serious: Yes (Other)
  Sender: FDA-Public Use
  Company Number: US-SA-2021SA146977

PATIENT
  Age: 58 Year
  Sex: Female

DRUGS (1)
  1. DUPIXENT [Suspect]
     Active Substance: DUPILUMAB
     Indication: DERMATITIS ATOPIC
     Route: 058
     Dates: start: 20210304

REACTIONS (8)
  - Paraesthesia [Unknown]
  - Lip pruritus [Unknown]
  - Paraesthesia oral [Unknown]
  - Pruritus [Unknown]
  - Palpitations [Unknown]
  - Oral herpes [Unknown]
  - Weight increased [Unknown]
  - Cardiac flutter [Unknown]

NARRATIVE: CASE EVENT DATE: 2021
